FAERS Safety Report 7979690-2 (Version None)
Quarter: 2011Q4

REPORT INFORMATION
  Report Type: 
  Country: None (occurrence: None)
  Receive Date: 20111214
  Receipt Date: 20111212
  Transmission Date: 20120403
  Serious: Yes (Other)
  Sender: FDA-Public Use
  Company Number: NO-ROCHE-1021463

PATIENT
  Sex: Male

DRUGS (2)
  1. ISOTRETINOIN [Suspect]
     Indication: ACNE
     Route: 048
     Dates: start: 20090301, end: 20090501
  2. ISOTRETINOIN [Suspect]
     Route: 048
     Dates: start: 20090501, end: 20100201

REACTIONS (1)
  - ANOSMIA [None]
